FAERS Safety Report 6965940-8 (Version None)
Quarter: 2010Q3

REPORT INFORMATION
  Report Type: 
  Country: None (occurrence: None)
  Receive Date: 20100903
  Receipt Date: 20100825
  Transmission Date: 20110219
  Serious: Yes (Death, Other)
  Sender: FDA-Public Use
  Company Number: US-AMGEN-QUU431834

PATIENT
  Sex: Male
  Weight: 88.9 kg

DRUGS (4)
  1. NPLATE [Suspect]
     Indication: PRODUCT USED FOR UNKNOWN INDICATION
     Dates: start: 20090128, end: 20100111
  2. CORTICOSTEROIDS [Concomitant]
  3. RITUXIMAB [Concomitant]
     Dates: start: 20081124
  4. CYCLOPHOSPHAMIDE [Concomitant]
     Dates: start: 20081124

REACTIONS (2)
  - MULTIMORBIDITY [None]
  - THERAPEUTIC RESPONSE DECREASED [None]
